FAERS Safety Report 17125186 (Version 2)
Quarter: 2019Q4

REPORT INFORMATION
  Report Type: Report from Study
  Country: None (occurrence: FI)
  Receive Date: 20191206
  Receipt Date: 20191212
  Transmission Date: 20200122
  Serious: Yes (Death, Hospitalization)
  Sender: FDA-Public Use
  Company Number: FI-ABBVIE-19K-055-3184308-00

PATIENT
  Sex: Male
  Weight: 51.3 kg

DRUGS (7)
  1. INNOHEP [Concomitant]
     Active Substance: TINZAPARIN SODIUM
     Indication: PRODUCT USED FOR UNKNOWN INDICATION
  2. EXELON [Concomitant]
     Active Substance: RIVASTIGMINE TARTRATE
     Indication: PRODUCT USED FOR UNKNOWN INDICATION
  3. OXYNORM [Concomitant]
     Active Substance: OXYCODONE HYDROCHLORIDE
     Indication: PRODUCT USED FOR UNKNOWN INDICATION
     Dates: start: 2019
  4. DUODOPA [Suspect]
     Active Substance: CARBIDOPA\LEVODOPA
     Indication: PARKINSON^S DISEASE
     Dosage: WHOLE DAY CONTINUOUS INFUSION 1.5 ML/H; 16 H TREATMENT?STRENGTH: 20 MG/ML 5 MG/ML
     Route: 050
     Dates: start: 201701
  5. PANADOL [Concomitant]
     Active Substance: ACETAMINOPHEN
     Indication: PRODUCT USED FOR UNKNOWN INDICATION
  6. MELATONIN [Concomitant]
     Active Substance: MELATONIN
     Indication: PRODUCT USED FOR UNKNOWN INDICATION
  7. LEVOLAC [Concomitant]
     Active Substance: LACTULOSE
     Indication: PRODUCT USED FOR UNKNOWN INDICATION

REACTIONS (8)
  - Restlessness [Unknown]
  - Hyperexplexia [Unknown]
  - Parkinson^s disease [Unknown]
  - Fall [Unknown]
  - Mobility decreased [Unknown]
  - Dizziness [Not Recovered/Not Resolved]
  - General physical health deterioration [Fatal]
  - Loss of personal independence in daily activities [Not Recovered/Not Resolved]
